FAERS Safety Report 5218643-4 (Version None)
Quarter: 2007Q1

REPORT INFORMATION
  Report Type: 
  Country: None (occurrence: None)
  Receive Date: 20070122
  Receipt Date: 20070111
  Transmission Date: 20070707
  Serious: Yes (Death, Hospitalization)
  Sender: FDA-Public Use
  Company Number: 2006EU003379

PATIENT
  Age: 62 Year
  Sex: Female
  Weight: 71 kg

DRUGS (4)
  1. PROGRAF [Suspect]
     Indication: LUNG TRANSPLANT
     Dosage: 0.5 MG, ORAL
     Route: 048
     Dates: end: 20060516
  2. PAROXETINE HCL [Suspect]
     Dosage: 20 MG, ORAL
     Route: 048
     Dates: start: 20060513, end: 20060515
  3. ENDOBULINE (IMMUNOGLOBULIN HUMAN NORMAL) [Suspect]
     Dosage: 20 G, IV NOS
     Route: 042
     Dates: start: 20060512, end: 20060515
  4. ALBUMIN (HUMAN) [Suspect]
     Dosage: 20 G, IV NOS
     Route: 042
     Dates: start: 20060513, end: 20060516

REACTIONS (10)
  - ASPARTATE AMINOTRANSFERASE INCREASED [None]
  - BLOOD CALCIUM DECREASED [None]
  - CACHEXIA [None]
  - COMA [None]
  - CONVULSION [None]
  - DIALYSIS [None]
  - DRUG TOXICITY [None]
  - MULTI-ORGAN DISORDER [None]
  - PROTHROMBIN TIME RATIO DECREASED [None]
  - RENAL FAILURE [None]
